FAERS Safety Report 11627074 (Version 1)
Quarter: 2015Q4

REPORT INFORMATION
  Report Type: Report from Study
  Country: BR (occurrence: BR)
  Receive Date: 20151013
  Receipt Date: 20151013
  Transmission Date: 20160304
  Serious: No
  Sender: FDA-Public Use
  Company Number: PHHY2015BR123686

PATIENT
  Sex: Female

DRUGS (1)
  1. TASIGNA [Suspect]
     Active Substance: NILOTINIB
     Indication: LEUKAEMIA
     Dosage: 2 DF, BID
     Route: 065

REACTIONS (3)
  - Fatigue [Unknown]
  - Platelet count decreased [Unknown]
  - Incorrect drug administration duration [Unknown]
